FAERS Safety Report 9942835 (Version 1)
Quarter: 2014Q1

REPORT INFORMATION
  Report Type: Report from Study
  Country: US (occurrence: US)
  Receive Date: 20140303
  Receipt Date: 20140303
  Transmission Date: 20141002
  Serious: No
  Sender: FDA-Public Use
  Company Number: US-ABBVIE-13P-163-1047598-00

PATIENT
  Age: 27 Year
  Sex: Female
  Weight: 95.34 kg

DRUGS (14)
  1. HUMIRA [Suspect]
     Indication: RHEUMATOID ARTHRITIS
     Dates: start: 201209
  2. HUMIRA [Suspect]
     Indication: CROHN^S DISEASE
  3. CEPHALEXIN [Concomitant]
     Indication: CROHN^S DISEASE
  4. BACLOFEN [Concomitant]
     Indication: MUSCLE SPASMS
  5. KLONOPIN [Concomitant]
     Indication: ANXIETY
  6. KEPPRA [Concomitant]
     Indication: CONVULSION
  7. LEVAMIRE [Concomitant]
     Indication: DIABETES MELLITUS
  8. DEPO PROVERA [Concomitant]
     Indication: CONTRACEPTION
  9. ADDERALL [Concomitant]
     Indication: ATTENTION DEFICIT/HYPERACTIVITY DISORDER
  10. PAMELOR [Concomitant]
     Indication: DEPRESSION
  11. ZOFRAN [Concomitant]
     Indication: NAUSEA
  12. VOLTAREN [Concomitant]
     Indication: PAIN
  13. RIOMET [Concomitant]
     Indication: DIABETES MELLITUS
  14. ZOMIG [Concomitant]
     Indication: MIGRAINE

REACTIONS (2)
  - Joint swelling [Not Recovered/Not Resolved]
  - Diarrhoea [Not Recovered/Not Resolved]
